FAERS Safety Report 7370670-7 (Version None)
Quarter: 2011Q1

REPORT INFORMATION
  Report Type: 
  Country: None (occurrence: None)
  Receive Date: 20110323
  Receipt Date: 20110314
  Transmission Date: 20110831
  Serious: No
  Sender: FDA-Public Use
  Company Number: US-BAYER-2011-023280

PATIENT
  Sex: Male
  Weight: 79 kg

DRUGS (10)
  1. GAS-X [Concomitant]
     Dosage: UNK
  2. CITRACAL MAXIMUM [Suspect]
     Dosage: 6 DF, TID
     Route: 048
     Dates: start: 20100901
  3. CITRACAL MAXIMUM [Suspect]
     Dosage: 2 DF, TID
  4. LOVAZA [Concomitant]
     Dosage: UNK
  5. PROBIOTICS [Concomitant]
     Dosage: UNK
  6. ALEVE (CAPLET) [Concomitant]
     Indication: ANALGESIC THERAPY
     Dosage: 1 DF, QD
     Route: 048
     Dates: start: 20101201
  7. OMEPRAZOLE [Concomitant]
     Dosage: UNK
  8. COLESTIPOL HYDROCHLORIDE [Concomitant]
     Dosage: UNK
  9. AMLODIPINE W/BENAZEPRIL [Concomitant]
     Dosage: UNK
  10. IMODIUM [Concomitant]

REACTIONS (3)
  - NAUSEA [None]
  - ABDOMINAL PAIN [None]
  - ABDOMINAL DISTENSION [None]
